FAERS Safety Report 10584473 (Version 1)
Quarter: 2014Q4

REPORT INFORMATION
  Report Type: Spontaneous
  Country: US (occurrence: None)
  Receive Date: 20141113
  Receipt Date: 20141113
  Transmission Date: 20150529
  Serious: Yes (Other)
  Sender: FDA-Public Use
  Company Number: None

PATIENT
  Age: 38 Year
  Sex: Male

DRUGS (2)
  1. LIDOCAINE HCL [Suspect]
     Active Substance: LIDOCAINE HYDROCHLORIDE
     Indication: RHINITIS
     Dosage: 5ML RINSE, AS NEEDED, TAKEN BY MOUTH
     Route: 048
  2. LIDOCAINE HCL [Suspect]
     Active Substance: LIDOCAINE HYDROCHLORIDE
     Indication: GLOSSODYNIA
     Dosage: 5ML RINSE, AS NEEDED, TAKEN BY MOUTH
     Route: 048

REACTIONS (1)
  - Product taste abnormal [None]

NARRATIVE: CASE EVENT DATE: 20141112
